FAERS Safety Report 10569648 (Version 1)
Quarter: 2014Q4

REPORT INFORMATION
  Report Type: Report from Study
  Country: MX (occurrence: MX)
  Receive Date: 20141107
  Receipt Date: 20141107
  Transmission Date: 20150529
  Serious: Yes (Other)
  Sender: FDA-Public Use
  Company Number: MX-AMGEN-MEXSL2014085086

PATIENT
  Age: 83 Year
  Sex: Female
  Weight: 56 kg

DRUGS (1)
  1. PROLIA [Suspect]
     Active Substance: DENOSUMAB
     Indication: PRODUCT USED FOR UNKNOWN INDICATION
     Dosage: 1 ML (60MG/ML), Q6MO
     Route: 058
     Dates: start: 2014

REACTIONS (1)
  - Laceration [Unknown]

NARRATIVE: CASE EVENT DATE: 201409
